FAERS Safety Report 6782414-8 (Version None)
Quarter: 2010Q2

REPORT INFORMATION
  Report Type: 
  Country: None (occurrence: None)
  Receive Date: 20100616
  Receipt Date: 20100602
  Transmission Date: 20101027
  Serious: Yes (Hospitalization)
  Sender: FDA-Public Use
  Company Number: A-US2010-36792

PATIENT
  Age: 76 Year
  Sex: Male

DRUGS (3)
  1. TRACLEER [Suspect]
     Indication: PULMONARY ARTERIAL HYPERTENSION
     Dosage: ORAL
     Route: 048
     Dates: start: 20081110
  2. CALCIUM CHANNEL BLOCKERS [Concomitant]
  3. COUMADIN [Concomitant]

REACTIONS (5)
  - ATRIAL FIBRILLATION [None]
  - HIGH FREQUENCY ABLATION [None]
  - OBSTRUCTIVE UROPATHY [None]
  - OEDEMA [None]
  - PROSTATOMEGALY [None]
